FAERS Safety Report 10084064 (Version 2)
Quarter: 2014Q2

REPORT INFORMATION
  Report Type: Spontaneous
  Country: US (occurrence: US)
  Receive Date: 20140417
  Receipt Date: 20140520
  Transmission Date: 20141212
  Serious: No
  Sender: FDA-Public Use
  Company Number: US-009507513-1404USA006188

PATIENT
  Sex: Female
  Weight: 90.7 kg

DRUGS (2)
  1. OXYTROL FOR WOMEN [Suspect]
     Indication: HYPERTONIC BLADDER
     Dosage: 1 DF, Q4D
     Route: 062
     Dates: start: 201311, end: 201404
  2. LUCENTIS [Concomitant]
     Indication: AGE-RELATED MACULAR DEGENERATION
     Dosage: UNK, UNKNOWN

REACTIONS (3)
  - Burning sensation [Recovered/Resolved]
  - Rash [Recovered/Resolved]
  - Drug effect decreased [Unknown]
